FAERS Safety Report 10412575 (Version 1)
Quarter: 2014Q3

REPORT INFORMATION
  Report Type: Spontaneous
  Country: US (occurrence: US)
  Receive Date: 20140827
  Receipt Date: 20140827
  Transmission Date: 20150326
  Serious: Yes (Other)
  Sender: FDA-Public Use
  Company Number: US-SA-2014SA113254

PATIENT
  Age: 22 Year
  Sex: Female

DRUGS (1)
  1. SELSUN BLUE [Suspect]
     Active Substance: SELENIUM SULFIDE
     Indication: PRODUCT USED FOR UNKNOWN INDICATION
     Dosage: ROUTE: SCALP

REACTIONS (6)
  - Pain [Not Recovered/Not Resolved]
  - Skin reaction [Unknown]
  - Alopecia [Unknown]
  - Application site swelling [Unknown]
  - Application site pain [Unknown]
  - Application site pruritus [Unknown]

NARRATIVE: CASE EVENT DATE: 20140815
